FAERS Safety Report 5551075-8 (Version None)
Quarter: 2007Q4

REPORT INFORMATION
  Report Type: 
  Country: None (occurrence: None)
  Receive Date: 20071212
  Receipt Date: 20071204
  Transmission Date: 20080405
  Serious: Yes (Hospitalization, Other)
  Sender: FDA-Public Use
  Company Number: JP-BRISTOL-MYERS SQUIBB COMPANY-14011241

PATIENT
  Age: 71 Year
  Sex: Female

DRUGS (7)
  1. CYCLOPHOSPHAMIDE [Suspect]
     Indication: LYMPHOMA
     Dosage: ALSO STARTED IN 2003
     Dates: start: 20000101
  2. LASTET [Suspect]
     Indication: LYMPHOMA
     Route: 042
     Dates: start: 20030101
  3. DOXORUBICIN HCL [Suspect]
     Indication: LYMPHOMA
     Dosage: ALSO STARTED ON-2003
     Dates: start: 20000101
  4. VINCRISTINE SULFATE [Suspect]
     Indication: LYMPHOMA
     Dosage: THERAPY ALSO ON-2003
     Dates: start: 20000101
  5. PERAZOLIN [Suspect]
     Indication: LYMPHOMA
     Route: 048
     Dates: start: 20030101
  6. PREDNISOLONE [Suspect]
     Indication: LYMPHOMA
     Dosage: THERAPY ALSO STARTED ON -2003
     Dates: start: 20000101
  7. RITUXIMAB [Suspect]
     Indication: LYMPHOMA
     Dates: start: 20030101

REACTIONS (2)
  - CARDIOMYOPATHY [None]
  - PANCYTOPENIA [None]
